FAERS Safety Report 17952397 (Version 2)
Quarter: 2020Q3

REPORT INFORMATION
  Report Type: Spontaneous
  Country: US (occurrence: US)
  Receive Date: 20200626
  Receipt Date: 20200730
  Transmission Date: 20201103
  Serious: Yes (Other)
  Sender: FDA-Public Use
  Company Number: NVSC2020US178831

PATIENT
  Age: 1 Year
  Sex: Male
  Weight: 10.69 kg

DRUGS (4)
  1. ZOLGENSMA [Suspect]
     Active Substance: ONASEMNOGENE ABEPARVOVEC-XIOI
     Dosage: UNK UNK, ONCE/SINGLE
     Route: 042
  2. ZOLGENSMA [Suspect]
     Active Substance: ONASEMNOGENE ABEPARVOVEC-XIOI
     Indication: SPINAL MUSCULAR ATROPHY
     Dosage: UNK, ONCE/SINGLE (10.6?11 KG )
     Route: 042
     Dates: start: 20200610
  3. PREDNISOLONE. [Suspect]
     Active Substance: PREDNISOLONE
     Indication: PRODUCT USED FOR UNKNOWN INDICATION
     Dosage: 1 UNK
     Route: 065
     Dates: start: 20200609, end: 20200609
  4. PREDNISOLONE. [Suspect]
     Active Substance: PREDNISOLONE
     Dosage: 2 MG/KG, QD
     Route: 065

REACTIONS (1)
  - Liver function test increased [Recovered/Resolved]

NARRATIVE: CASE EVENT DATE: 20200618
